FAERS Safety Report 6336404-X (Version None)
Quarter: 2009Q3

REPORT INFORMATION
  Report Type: 
  Country: None (occurrence: None)
  Receive Date: 20090901
  Receipt Date: 20090821
  Transmission Date: 20100115
  Serious: Yes (Hospitalization)
  Sender: FDA-Public Use
  Company Number: JP-NOVOPROD-290049

PATIENT
  Age: 52 Year
  Sex: Female
  Weight: 57 kg

DRUGS (9)
  1. LEVEMIR [Suspect]
     Indication: TYPE 2 DIABETES MELLITUS
     Dosage: 3 IU, QD
     Route: 058
     Dates: start: 20090729, end: 20090729
  2. NOVORAPID CHU FLEXPEN [Suspect]
     Indication: TYPE 2 DIABETES MELLITUS
     Dosage: 4 IU, QD
     Route: 058
     Dates: start: 20090728, end: 20090729
  3. NOVORAPID CHU FLEXPEN [Suspect]
     Dosage: 5 IU, QD
     Route: 058
     Dates: start: 20090729, end: 20090729
  4. NOVOLIN R [Suspect]
     Indication: TYPE 2 DIABETES MELLITUS
     Dosage: 7 IU, QD
     Route: 058
     Dates: start: 20090729, end: 20090731
  5. AMARYL [Concomitant]
     Indication: DIABETES MELLITUS
     Dosage: 3 MG, QD
     Route: 048
     Dates: start: 20010701
  6. STARSIS [Concomitant]
     Indication: DIABETES MELLITUS
     Dosage: 270 MG, QD
     Route: 048
     Dates: start: 20090731
  7. BAYSLOWTH [Concomitant]
     Indication: DIABETES MELLITUS
     Dosage: .9 MG, QD
     Route: 048
     Dates: start: 20090731
  8. CELESTAMINE                        /01221101/ [Concomitant]
     Dosage: 3 TAB, QD
     Route: 048
     Dates: start: 20090728, end: 20090731
  9. ALLEGRA [Concomitant]

REACTIONS (2)
  - NAUSEA [None]
  - VOMITING [None]
